FAERS Safety Report 17462593 (Version 1)
Quarter: 2020Q1

REPORT INFORMATION
  Report Type: Spontaneous
  Country: FR (occurrence: FR)
  Receive Date: 20200226
  Receipt Date: 20200226
  Transmission Date: 20200409
  Serious: Yes (Death, Hospitalization)
  Sender: FDA-Public Use
  Company Number: FR-BIOGEN-2020BI00841221

PATIENT
  Age: 81 Year
  Sex: Male

DRUGS (4)
  1. AVONEX [Suspect]
     Active Substance: INTERFERON BETA-1A
  2. AVONEX [Suspect]
     Active Substance: INTERFERON BETA-1A
     Indication: CORONA VIRUS INFECTION
     Dosage: 6 INJECTIONS IN TOTAL = 1 INJECTION PER DAY
     Route: 042
     Dates: start: 20200213
  3. AVONEX [Suspect]
     Active Substance: INTERFERON BETA-1A
  4. AVONEX [Suspect]
     Active Substance: INTERFERON BETA-1A

REACTIONS (6)
  - Shock [Fatal]
  - Aspergillus infection [Fatal]
  - Corona virus infection [Fatal]
  - Off label use [Unknown]
  - Acinetobacter infection [Fatal]
  - Acute respiratory distress syndrome [Fatal]

NARRATIVE: CASE EVENT DATE: 20200213
